FAERS Safety Report 13286384 (Version 2)
Quarter: 2017Q2

REPORT INFORMATION
  Report Type: Spontaneous
  Country: DE (occurrence: DE)
  Receive Date: 20170301
  Receipt Date: 20170418
  Transmission Date: 20170830
  Serious: Yes (Other)
  Sender: FDA-Public Use
  Company Number: GXKR2017DE001290

PATIENT
  Age: 48 Year
  Sex: Male
  Weight: 69 kg

DRUGS (3)
  1. RANITIDIN 1 A PHARMA [Suspect]
     Active Substance: RANITIDINE HYDROCHLORIDE
     Indication: TOOTHACHE
     Dosage: 300 MG, QD
     Route: 048
     Dates: start: 201611
  2. IBUPROFEN. [Concomitant]
     Active Substance: IBUPROFEN
     Indication: TOOTHACHE
     Dosage: 800 MG, QID
     Route: 048
     Dates: start: 201611
  3. ALCOHOL. [Interacting]
     Active Substance: ALCOHOL
     Indication: DENTAL CARE
     Route: 061

REACTIONS (2)
  - Blood alcohol increased [Unknown]
  - Breath alcohol test positive [Unknown]
